FAERS Safety Report 15210425 (Version 3)
Quarter: 2018Q3

REPORT INFORMATION
  Report Type: Spontaneous
  Country: US (occurrence: US)
  Receive Date: 20180727
  Receipt Date: 20180814
  Transmission Date: 20181010
  Serious: No
  Sender: FDA-Public Use
  Company Number: US-SA-2018SA197127

PATIENT
  Age: 65 Year
  Sex: Male

DRUGS (1)
  1. LANTUS [Suspect]
     Active Substance: INSULIN GLARGINE
     Indication: TYPE 2 DIABETES MELLITUS
     Dosage: 45 DF, QD
     Route: 065

REACTIONS (3)
  - Device breakage [Unknown]
  - Device operational issue [Unknown]
  - Blood glucose increased [Unknown]
